FAERS Safety Report 8523845-5 (Version None)
Quarter: 2012Q3

REPORT INFORMATION
  Report Type: 
  Country: None (occurrence: None)
  Receive Date: 20120720
  Receipt Date: 20120712
  Transmission Date: 20120928
  Serious: Yes (Hospitalization, Other)
  Sender: FDA-Public Use
  Company Number: US-BAYER-2012-070920

PATIENT
  Age: 26 Year
  Sex: Female
  Weight: 108.84 kg

DRUGS (13)
  1. SUMATRIPTAN [Concomitant]
     Dosage: UNK
     Dates: start: 20090116, end: 20090220
  2. ACETAMINOPHEN W/ CODEINE [Concomitant]
     Dosage: UNK
     Dates: start: 20090318
  3. PENICILLIN [Concomitant]
     Dosage: UNK
     Dates: start: 20090318
  4. TYLENOL W/ CODEINE NO. 3 [Concomitant]
  5. DARVOCET [Concomitant]
  6. CYCLOBENZAPRINE [Concomitant]
     Dosage: UNK
     Dates: start: 20090220
  7. NASONEX [Concomitant]
     Dosage: UNK
     Dates: start: 20090223
  8. MORPHINE SULFATE [Concomitant]
  9. DARVOCET-N 100 [Concomitant]
     Dosage: UNK
     Dates: start: 20090301
  10. YAZ [Suspect]
  11. LISINOPRIL [Concomitant]
     Dosage: UNK
     Dates: start: 20090116
  12. AZITHROMYCIN [Concomitant]
     Dosage: UNK
     Dates: start: 20090220
  13. IBUPROFEN [Concomitant]
     Dosage: UNK
     Dates: start: 20090301, end: 20090505

REACTIONS (4)
  - PULMONARY INFARCTION [None]
  - DEEP VEIN THROMBOSIS [None]
  - CHOLECYSTITIS [None]
  - PULMONARY EMBOLISM [None]
